FAERS Safety Report 7158461-3 (Version None)
Quarter: 2010Q4

REPORT INFORMATION
  Report Type: 
  Country: None (occurrence: None)
  Receive Date: 20101214
  Receipt Date: 20100602
  Transmission Date: 20110411
  Serious: No
  Sender: FDA-Public Use
  Company Number: US-ASTRAZENECA-2010SE25485

PATIENT
  Age: 72 Year
  Sex: Male

DRUGS (2)
  1. CRESTOR [Suspect]
     Indication: HYPERCHOLESTEROLAEMIA
     Route: 048
     Dates: start: 20070101
  2. NORVASC [Concomitant]
     Indication: HYPERTENSION

REACTIONS (3)
  - ALOPECIA [None]
  - PRURITUS [None]
  - PSORIASIS [None]
